FAERS Safety Report 19353916 (Version 1)
Quarter: 2021Q2

REPORT INFORMATION
  Report Type: Spontaneous
  Country: US (occurrence: US)
  Receive Date: 20210531
  Receipt Date: 20210531
  Transmission Date: 20210717
  Serious: Yes (Other)
  Sender: FDA-Public Use
  Company Number: US-PURDUE-USA-2020-0156673

PATIENT
  Sex: Male

DRUGS (1)
  1. OXYCODONE HYDROCHLORIDE (SIMILAR TO NDA 22?272) [Suspect]
     Active Substance: OXYCODONE HYDROCHLORIDE
     Indication: PAIN
     Dosage: UNK
     Route: 048
     Dates: start: 201612

REACTIONS (17)
  - Drug dependence [Unknown]
  - Hyperhidrosis [Unknown]
  - Heart rate increased [Unknown]
  - Loss of personal independence in daily activities [Unknown]
  - Chills [Unknown]
  - Pain [Unknown]
  - Emotional distress [Unknown]
  - Amnesia [Unknown]
  - Feeling abnormal [Unknown]
  - Libido decreased [Unknown]
  - Drug ineffective [Unknown]
  - Anger [Unknown]
  - Asthenia [Unknown]
  - Constipation [Unknown]
  - Insomnia [Unknown]
  - Paraesthesia [Unknown]
  - Mobility decreased [Unknown]
